FAERS Safety Report 8405942-8 (Version None)
Quarter: 2012Q2

REPORT INFORMATION
  Report Type: 
  Country: None (occurrence: None)
  Receive Date: 20120604
  Receipt Date: 20120525
  Transmission Date: 20120825
  Serious: No
  Sender: FDA-Public Use
  Company Number: US-JNJFOC-20120411366

PATIENT
  Sex: Male

DRUGS (4)
  1. DURAGESIC-100 [Suspect]
     Indication: RHEUMATOID ARTHRITIS
     Route: 062
     Dates: start: 20110101
  2. DURAGESIC-100 [Suspect]
     Indication: KNEE ARTHROPLASTY
     Route: 062
     Dates: start: 20110101
  3. DURAGESIC-100 [Suspect]
     Indication: HEPATIC CIRRHOSIS
     Route: 062
     Dates: start: 20110101
  4. DURAGESIC-100 [Suspect]
     Indication: HEPATITIS C
     Route: 062
     Dates: start: 20110101

REACTIONS (6)
  - PAIN [None]
  - MALAISE [None]
  - DRUG INEFFECTIVE [None]
  - PRODUCT QUALITY ISSUE [None]
  - WRONG TECHNIQUE IN DRUG USAGE PROCESS [None]
  - HYPERHIDROSIS [None]
